FAERS Safety Report 5373137-0 (Version None)
Quarter: 2007Q2

REPORT INFORMATION
  Report Type: 
  Country: None (occurrence: None)
  Receive Date: 20070626
  Receipt Date: 20070615
  Transmission Date: 20071010
  Serious: Yes (Other)
  Sender: FDA-Public Use
  Company Number: MEDI-0005839

PATIENT
  Age: 14 Month
  Sex: Male

DRUGS (6)
  1. SYNAGIS [Suspect]
  2. SYNAGIS [Suspect]
  3. SYNAGIS [Suspect]
  4. SYNAGIS [Suspect]
  5. SYNAGIS [Suspect]
  6. SYNAGIS [Suspect]

REACTIONS (1)
  - NEPHROLITHIASIS [None]
